FAERS Safety Report 7954824-4 (Version None)
Quarter: 2011Q4

REPORT INFORMATION
  Report Type: 
  Country: None (occurrence: None)
  Receive Date: 20111202
  Receipt Date: 20111122
  Transmission Date: 20120403
  Serious: Yes (Death, Hospitalization)
  Sender: FDA-Public Use
  Company Number: US-ACTELION-A-NJ2011-56759

PATIENT

DRUGS (7)
  1. SILDENAFIL [Concomitant]
  2. VIREAD [Concomitant]
  3. EPOPROSTENOL SODIUM [Suspect]
     Indication: PULMONARY ARTERIAL HYPERTENSION
     Dosage: 48 NG/KG, PER MIN
     Route: 041
     Dates: start: 20110915, end: 20111104
  4. NORVIR [Concomitant]
  5. LETAIRIS [Concomitant]
  6. COUMADIN [Concomitant]
  7. PREZISTA [Concomitant]

REACTIONS (2)
  - BURKITT'S LYMPHOMA [None]
  - CONCOMITANT DISEASE PROGRESSION [None]
